FAERS Safety Report 8574354-9 (Version None)
Quarter: 2012Q3

REPORT INFORMATION
  Report Type: 
  Country: None (occurrence: None)
  Receive Date: 20120806
  Receipt Date: 20120723
  Transmission Date: 20120928
  Serious: Yes (Hospitalization)
  Sender: FDA-Public Use
  Company Number: US-009507513-1207USA011235

PATIENT

DRUGS (18)
  1. PRADAXA [Suspect]
     Dosage: 150 MG, BID
     Route: 048
  2. FUROSEMIDE [Suspect]
     Dosage: 1 DF, UNK
  3. MORPHINE SULFATE [Suspect]
     Dosage: 1 DF, UNK
  4. LOSARTAN POTASSIUM [Suspect]
     Dosage: 1 DF, UNK
  5. BERODUAL [Suspect]
     Dosage: 1 DF, UNK
  6. SERTRALINE HYDROCHLORIDE [Suspect]
     Dosage: 1 DF, UNK
  7. OXAZEPAM [Suspect]
     Dosage: 1 DF, UNK
  8. BRICANYL [Suspect]
     Dosage: 1 DF, UNK
  9. ISOPTIN [Suspect]
     Dosage: 1 DF, UNK
  10. ZOLPIDEM TATRATE [Suspect]
     Dosage: 1 DF, UNK
  11. ACETAMINOPHEN [Suspect]
     Dosage: 1 DF, UNK
  12. POTASSIUM CHLORIDE [Suspect]
  13. DUOVENT [Suspect]
     Dosage: 1 DF, UNK
  14. ZOCOR [Suspect]
  15. DIGOXIN [Suspect]
  16. PREDNISOLONE [Suspect]
  17. SERETIDE [Suspect]
     Dosage: 1 DF, UNK
  18. SPIRIVA [Suspect]

REACTIONS (3)
  - ABDOMINAL PAIN UPPER [None]
  - GASTRIC ULCER [None]
  - IRON DEFICIENCY ANAEMIA [None]
